FAERS Safety Report 9387334 (Version 1)
Quarter: 2013Q3

REPORT INFORMATION
  Report Type: Spontaneous
  Country: US (occurrence: None)
  Receive Date: 20130703
  Receipt Date: 20130703
  Transmission Date: 20140515
  Serious: No
  Sender: FDA-Public Use
  Company Number: None

PATIENT
  Age: 75 Year
  Sex: Female
  Weight: 100.25 kg

DRUGS (1)
  1. HYDROXYZINE PAMOATE [Suspect]
     Dosage: 1 PILL 3X DAILY 3 DAYS

REACTIONS (1)
  - Influenza like illness [None]
